FAERS Safety Report 13646268 (Version 1)
Quarter: 2017Q2

REPORT INFORMATION
  Report Type: Spontaneous
  Country: US (occurrence: US)
  Receive Date: 20170613
  Receipt Date: 20170613
  Transmission Date: 20170830
  Serious: Yes (Hospitalization, Other)
  Sender: FDA-Public Use
  Company Number: US-BRISTOL-MYERS SQUIBB COMPANY-BMS-2017-050309

PATIENT
  Age: 80 Year
  Sex: Female
  Weight: 78.5 kg

DRUGS (5)
  1. PROCAINE [Concomitant]
     Active Substance: PROCAINE
     Indication: PRODUCT USED FOR UNKNOWN INDICATION
     Dosage: UNK
     Route: 065
  2. ATIVAN [Concomitant]
     Active Substance: LORAZEPAM
     Indication: PRODUCT USED FOR UNKNOWN INDICATION
     Dosage: UNK
     Route: 065
  3. COUMADIN [Suspect]
     Active Substance: WARFARIN SODIUM
     Indication: THROMBOSIS
     Dosage: 3 MG, UNK
     Route: 048
     Dates: end: 20170503
  4. PENICILLIN                         /00000901/ [Concomitant]
     Active Substance: PENICILLIN G
     Indication: PRODUCT USED FOR UNKNOWN INDICATION
     Dosage: UNK
     Route: 065
  5. XANAX [Concomitant]
     Active Substance: ALPRAZOLAM
     Indication: PRODUCT USED FOR UNKNOWN INDICATION
     Dosage: UNK
     Route: 065

REACTIONS (11)
  - Wrist fracture [Unknown]
  - Hip fracture [Unknown]
  - Spinal compression fracture [Unknown]
  - Pneumonia [Unknown]
  - Antiphospholipid antibodies positive [Unknown]
  - Fall [Unknown]
  - Upper limb fracture [Unknown]
  - Drug ineffective [Unknown]
  - International normalised ratio fluctuation [Unknown]
  - Thrombosis [Unknown]
  - Prothrombin time abnormal [Unknown]

NARRATIVE: CASE EVENT DATE: 2015
